FAERS Safety Report 8525246-2 (Version None)
Quarter: 2012Q3

REPORT INFORMATION
  Report Type: 
  Country: None (occurrence: None)
  Receive Date: 20120720
  Receipt Date: 20120717
  Transmission Date: 20120928
  Serious: Yes (Hospitalization, Other)
  Sender: FDA-Public Use
  Company Number: PHHY2011US45446

PATIENT
  Sex: Female

DRUGS (8)
  1. OXYCODONE HCL [Concomitant]
     Dosage: UNK UKN, UNK
  2. SOLU-MEDROL [Interacting]
     Indication: MULTIPLE SCLEROSIS
     Dosage: 500 MG, UNK
     Route: 042
     Dates: start: 20110204, end: 20110311
  3. TIZANIDINE HYDROCHLORIDE [Concomitant]
     Dosage: UNK UKN, UNK
  4. XANAX [Concomitant]
     Dosage: UNK UKN, UNK
  5. GILENYA [Suspect]
     Indication: MULTIPLE SCLEROSIS
     Dosage: 0.5 MG, QD
     Route: 048
     Dates: start: 20100401
  6. CENTURION [Concomitant]
     Dosage: UNK UKN, UNK
  7. PROZAC [Concomitant]
     Dosage: UNK UKN, UNK
  8. FAMPRIDINE [Concomitant]
     Dosage: UNK UKN, UNK

REACTIONS (8)
  - EYE DISCHARGE [None]
  - TIBIA FRACTURE [None]
  - FAECES HARD [None]
  - CONSTIPATION [None]
  - RECTAL HAEMORRHAGE [None]
  - WHITE BLOOD CELL COUNT DECREASED [None]
  - DRUG INTERACTION [None]
  - MULTIPLE SCLEROSIS RELAPSE [None]
